FAERS Safety Report 8012754-6 (Version None)
Quarter: 2011Q4

REPORT INFORMATION
  Report Type: 
  Country: None (occurrence: None)
  Receive Date: 20111229
  Receipt Date: 20111223
  Transmission Date: 20120403
  Serious: Yes (Hospitalization)
  Sender: FDA-Public Use
  Company Number: KZ-JNJFOC-20111210675

PATIENT
  Sex: Male

DRUGS (6)
  1. RIFAMPICIN [Concomitant]
     Route: 048
  2. DORIPENEM [Suspect]
     Indication: INFECTIOUS PLEURAL EFFUSION
     Route: 041
     Dates: start: 20111102, end: 20111107
  3. ISONIAZID [Concomitant]
     Route: 048
  4. SODIUM CHLORIDE [Suspect]
     Indication: PRODUCT USED FOR UNKNOWN INDICATION
     Route: 065
     Dates: start: 20111102, end: 20111107
  5. DORIPENEM [Suspect]
     Indication: TUBERCULOSIS
     Route: 041
     Dates: start: 20111102, end: 20111107
  6. ETHAMBUTOL HYDROCHLORIDE [Concomitant]
     Route: 048

REACTIONS (1)
  - PYREXIA [None]
